FAERS Safety Report 5855055-4 (Version None)
Quarter: 2008Q3

REPORT INFORMATION
  Report Type: 
  Country: None (occurrence: None)
  Receive Date: 20080822
  Receipt Date: 20080604
  Transmission Date: 20090109
  Serious: No
  Sender: FDA-Public Use
  Company Number: US-ABBOTT-08P-163-0457137-00

PATIENT
  Sex: Male
  Weight: 97.61 kg

DRUGS (4)
  1. SYNTHROID [Suspect]
     Indication: THYROID DISORDER
     Route: 048
     Dates: start: 20080501
  2. SYNTHROID [Suspect]
     Route: 048
     Dates: start: 20080501
  3. SYNTHROID [Suspect]
     Route: 048
     Dates: start: 20080609
  4. METOPROLOL SUCCINATE [Concomitant]
     Indication: BLOOD PRESSURE
     Route: 048
     Dates: start: 20020101

REACTIONS (1)
  - HEART RATE INCREASED [None]
